FAERS Safety Report 8732367 (Version 2)
Quarter: 2013Q2

REPORT INFORMATION
  Report Type: Spontaneous
  Country: FR (occurrence: FR)
  Receive Date: 20120820
  Receipt Date: 20130419
  Transmission Date: 20140414
  Serious: Yes (Hospitalization)
  Sender: FDA-Public Use
  Company Number: FR-GLAXOSMITHKLINE-B0822019A

PATIENT
  Age: 74 Year
  Sex: Female

DRUGS (16)
  1. ARIXTRA [Suspect]
     Indication: THROMBOSIS PROPHYLAXIS
     Dosage: 2.5MG PER DAY
     Route: 058
     Dates: start: 201205
  2. CEFTRIAXONE [Suspect]
     Indication: PRODUCT USED FOR UNKNOWN INDICATION
     Dosage: 1G PER DAY
     Route: 042
     Dates: start: 20120605, end: 20120609
  3. METRONIDAZOLE [Suspect]
     Indication: PRODUCT USED FOR UNKNOWN INDICATION
     Dosage: 1.5G PER DAY
     Route: 042
     Dates: start: 20120608, end: 20120609
  4. PERFALGAN [Suspect]
     Indication: PAIN
     Dosage: 3G PER DAY
     Route: 042
     Dates: start: 20120605, end: 20120608
  5. BISOPROLOL [Suspect]
     Indication: CARDIAC FAILURE
     Dosage: 1.25MG PER DAY
     Route: 048
     Dates: start: 20120607, end: 20120608
  6. AMLODIPINE [Suspect]
     Indication: HYPERTENSION
     Dosage: 2MG PER DAY
     Route: 048
     Dates: start: 20120602
  7. CRESTOR [Suspect]
     Indication: DYSLIPIDAEMIA
     Dosage: 10MG PER DAY
     Route: 048
     Dates: start: 2012, end: 20120608
  8. RISPERIDONE [Suspect]
     Indication: DEPRESSION
     Dosage: 2MG PER DAY
     Route: 048
     Dates: start: 201205, end: 20120613
  9. DIFFU K [Suspect]
     Indication: HYPOKALAEMIA
     Dosage: 4TAB PER DAY
     Route: 048
     Dates: start: 20120530
  10. VENLAFAXINE [Suspect]
     Indication: DEPRESSION
     Route: 048
     Dates: end: 20120612
  11. CHOLECALCIFEROL [Suspect]
     Indication: VITAMIN D DEFICIENCY
     Dosage: 2UNIT PER DAY
     Route: 048
     Dates: start: 20120606, end: 20120607
  12. HEMIGOXINE [Suspect]
     Indication: CARDIAC FAILURE
     Route: 048
     Dates: start: 20120601
  13. LASILIX [Suspect]
     Indication: CARDIAC FAILURE
     Dosage: 80MG PER DAY
     Route: 048
     Dates: start: 20120530, end: 20120605
  14. KARDEGIC [Concomitant]
  15. TRANSIPEG [Concomitant]
  16. TARDYFERON [Concomitant]

REACTIONS (1)
  - Hepatitis [Recovered/Resolved]
